FAERS Safety Report 12299903 (Version 1)
Quarter: 2016Q2

REPORT INFORMATION
  Report Type: Other
  Country: IN (occurrence: IN)
  Receive Date: 20160425
  Receipt Date: 20160425
  Transmission Date: 20160815
  Serious: Yes (Other)
  Sender: FDA-Public Use
  Company Number: IN-JUBILANT GENERICS LIMITED-1050948

PATIENT
  Age: 28 Year
  Sex: Male

DRUGS (2)
  1. LORAZEPAM. [Concomitant]
     Active Substance: LORAZEPAM
  2. OLANZAPINE. [Suspect]
     Active Substance: OLANZAPINE

REACTIONS (5)
  - Electrocardiogram QT prolonged [Recovered/Resolved]
  - Cardiac failure [Recovering/Resolving]
  - Bradycardia [Unknown]
  - Toxicity to various agents [Unknown]
  - Congestive cardiomyopathy [Recovering/Resolving]

NARRATIVE: CASE EVENT DATE: 20160411
